FAERS Safety Report 19908808 (Version 1)
Quarter: 2021Q4

REPORT INFORMATION
  Report Type: Other
  Country: FR (occurrence: FR)
  Receive Date: 20211002
  Receipt Date: 20211002
  Transmission Date: 20220303
  Serious: Yes (Life-Threatening, Hospitalization)
  Sender: FDA-Public Use
  Company Number: None

PATIENT

DRUGS (2)
  1. LEVOFLOXACIN [Suspect]
     Active Substance: LEVOFLOXACIN
     Indication: Infection
     Dosage: 750 MILLIGRAM
     Route: 065
     Dates: start: 20210715, end: 20210819
  2. CLOXACILLIN [Suspect]
     Active Substance: CLOXACILLIN
     Indication: Infection
     Dosage: 9 GRAM
     Route: 042
     Dates: start: 20210706

REACTIONS (1)
  - Drug reaction with eosinophilia and systemic symptoms [Not Recovered/Not Resolved]

NARRATIVE: CASE EVENT DATE: 20210815
